FAERS Safety Report 8513049-4 (Version None)
Quarter: 2012Q3

REPORT INFORMATION
  Report Type: 
  Country: None (occurrence: None)
  Receive Date: 20120705
  Receipt Date: 20120619
  Transmission Date: 20120928
  Serious: Yes (Hospitalization)
  Sender: FDA-Public Use
  Company Number: FK201201774

PATIENT
  Age: 65 Year
  Sex: Female

DRUGS (2)
  1. IDARUBICIN HCL [Concomitant]
  2. CYTARABINE [Suspect]
     Indication: ACUTE MYELOID LEUKAEMIA

REACTIONS (7)
  - TOXIC SKIN ERUPTION [None]
  - PNEUMONIA KLEBSIELLA [None]
  - ANAL ABSCESS [None]
  - CHILLS [None]
  - FEBRILE NEUTROPENIA [None]
  - DIARRHOEA [None]
  - SEPSIS [None]
